FAERS Safety Report 9691078 (Version 3)
Quarter: 2014Q2

REPORT INFORMATION
  Report Type: Report from Study
  Country: CN (occurrence: CN)
  Receive Date: 20131115
  Receipt Date: 20140424
  Transmission Date: 20141212
  Serious: Yes (Hospitalization)
  Sender: FDA-Public Use
  Company Number: CN-ACTELION-A-CH2013-90995

PATIENT
  Age: 43 Year
  Sex: Female
  Weight: 46.5 kg

DRUGS (10)
  1. MACITENTAN [Suspect]
     Indication: PULMONARY ARTERIAL HYPERTENSION
     Dosage: 10 MG, QD
     Route: 048
     Dates: start: 20120207, end: 20131107
  2. MACITENTAN [Suspect]
     Dosage: 10 MG, QD
     Route: 048
     Dates: start: 20131126
  3. PREDNISONE [Concomitant]
     Dosage: UNK
     Dates: start: 200807
  4. WARFARIN [Concomitant]
     Dosage: UNK
     Dates: start: 200807
  5. DIGOXIN [Concomitant]
     Dosage: UNK
     Dates: start: 200807
  6. VARDENAFIL [Concomitant]
     Dosage: UNK
     Dates: start: 200807
  7. AZATHIOPRINE [Concomitant]
     Dosage: UNK
     Dates: start: 200908
  8. SPIRONOLACTONE [Concomitant]
     Dosage: UNK
     Dates: start: 20110826
  9. HYDROCHLOROTHIAZIDE [Concomitant]
     Dosage: UNK
     Dates: start: 20110826
  10. FUROSEMIDE [Concomitant]
     Dosage: UNK
     Dates: start: 20111111

REACTIONS (10)
  - Blood bilirubin increased [Not Recovered/Not Resolved]
  - Cholestasis [Not Recovered/Not Resolved]
  - Pulmonary arterial hypertension [Recovering/Resolving]
  - Condition aggravated [Recovering/Resolving]
  - Aspartate aminotransferase increased [Unknown]
  - Fatigue [Not Recovered/Not Resolved]
  - Jaundice [Not Recovered/Not Resolved]
  - Nausea [Not Recovered/Not Resolved]
  - Dyspnoea [Recovering/Resolving]
  - Right ventricular failure [Recovering/Resolving]
